FAERS Safety Report 4331240-8 (Version None)
Quarter: 2004Q1

REPORT INFORMATION
  Report Type: 
  Country: None (occurrence: None)
  Receive Date: 20040329
  Receipt Date: 20040312
  Transmission Date: 20041129
  Serious: Yes (Hospitalization, Other)
  Sender: FDA-Public Use
  Company Number: 2004017369

PATIENT
  Age: 36 Year
  Sex: Female

DRUGS (15)
  1. VFEND [Suspect]
     Indication: OSTEOMYELITIS
     Dosage: 400 MG (BID), ORAL
     Route: 048
     Dates: start: 20031101, end: 20040201
  2. VFEND [Suspect]
     Indication: ILL-DEFINED DISORDER
     Dosage: 4 MG/KG (DAILY), INTRAVENOUS
     Route: 042
     Dates: start: 20040201
  3. CASPOFUNGIN (CASPOFUNGIN) [Suspect]
     Indication: OSTEOMYELITIS
  4. MYCOPHENOLATE SODIUM (MYCOPHENOLIC ACID SODIUM SALT) [Concomitant]
  5. TOCOPHEROL CONCENTRATE CAP [Concomitant]
  6. PANTOPRAZOLE (PANTOPRAZOLE) [Concomitant]
  7. AMITRIPTYLINE HCL [Concomitant]
  8. TACROLIMUS (TACROLIMUS) [Concomitant]
  9. PANCRELIPASE (PANCRLEIPASE) [Concomitant]
  10. CONJUGATED ESTROGENS [Concomitant]
  11. TRIAZOLAM [Concomitant]
  12. MONTELUKAST (MONTELUKAST) [Concomitant]
  13. FEXOFENADINE HYDROCHLORIDE [Concomitant]
  14. VALGANCICLOVIR [Concomitant]
  15. BACTRIM [Concomitant]

REACTIONS (5)
  - ASPERGILLOSIS [None]
  - CULTURE POSITIVE [None]
  - DISEASE PROGRESSION [None]
  - DRUG LEVEL DECREASED [None]
  - OSTEOMYELITIS [None]
